FAERS Safety Report 8191136-0 (Version None)
Quarter: 2012Q1

REPORT INFORMATION
  Report Type: 
  Country: None (occurrence: None)
  Receive Date: 20120307
  Receipt Date: 20120303
  Transmission Date: 20120608
  Serious: Yes (Life-Threatening, Disabling)
  Sender: FDA-Public Use
  Company Number: UA-GLAXOSMITHKLINE-B0785808A

PATIENT
  Age: 64 Year
  Sex: Male

DRUGS (1)
  1. ARIXTRA [Suspect]
     Indication: ACUTE MYOCARDIAL INFARCTION
     Dosage: 2.5MG PER DAY
     Route: 058
     Dates: start: 20120302, end: 20120302

REACTIONS (4)
  - ANAPHYLACTOID REACTION [None]
  - HYPERTHERMIA [None]
  - DYSPNOEA [None]
  - HYPOTENSION [None]
